FAERS Safety Report 11362275 (Version 1)
Quarter: 2015Q3

REPORT INFORMATION
  Report Type: Report from Study
  Country: US (occurrence: US)
  Receive Date: 20150810
  Receipt Date: 20150810
  Transmission Date: 20151125
  Serious: Yes (Other)
  Sender: FDA-Public Use
  Company Number: US-ASTELLAS-2015US027147

PATIENT
  Sex: Female

DRUGS (2)
  1. ERLOTINIB [Suspect]
     Active Substance: ERLOTINIB
     Indication: LUNG CARCINOMA CELL TYPE UNSPECIFIED STAGE IV
     Route: 065
     Dates: start: 201406
  2. BEVACIZUMAB [Suspect]
     Active Substance: BEVACIZUMAB
     Indication: PRODUCT USED FOR UNKNOWN INDICATION
     Dosage: UNK, UNKNOWN FREQ.
     Route: 065
     Dates: start: 201406, end: 201507

REACTIONS (12)
  - Rash [Unknown]
  - Alopecia [Unknown]
  - Photophobia [Unknown]
  - Pyrexia [Unknown]
  - Pruritus [Unknown]
  - Dry skin [Unknown]
  - Eye discharge [Unknown]
  - Cough [Unknown]
  - Inflammation [Unknown]
  - Asthenia [Unknown]
  - Acne [Unknown]
  - Neoplasm [Unknown]
